FAERS Safety Report 4309694-2 (Version None)
Quarter: 2004Q1

REPORT INFORMATION
  Report Type: 
  Country: None (occurrence: None)
  Receive Date: 20040301
  Receipt Date: 20040224
  Transmission Date: 20041129
  Serious: Yes (Other)
  Sender: FDA-Public Use
  Company Number: 200402441

PATIENT
  Age: 70 Year
  Sex: Male

DRUGS (5)
  1. IMODIUM [Suspect]
     Indication: DIARRHOEA
     Dosage: 2 CPLT ONCE PO
     Route: 048
     Dates: start: 20040222, end: 20040222
  2. LIPITOR [Concomitant]
  3. DIGOXIN [Concomitant]
  4. EULEXIN [Concomitant]
  5. COUMADIN [Concomitant]

REACTIONS (4)
  - BLINDNESS [None]
  - DRUG INEFFECTIVE [None]
  - EYE HAEMORRHAGE [None]
  - VOMITING [None]
